FAERS Safety Report 10414866 (Version 2)
Quarter: 2015Q1

REPORT INFORMATION
  Report Type: Spontaneous
  Country: US (occurrence: US)
  Receive Date: 20140828
  Receipt Date: 20150225
  Transmission Date: 20150720
  Serious: Yes (Disabling)
  Sender: FDA-Public Use
  Company Number: US-BEH-2014044618

PATIENT
  Sex: Female

DRUGS (1)
  1. ZEMAIRA [Suspect]
     Active Substance: .ALPHA.1-PROTEINASE INHIBITOR HUMAN
     Indication: PRODUCT USED FOR UNKNOWN INDICATION

REACTIONS (1)
  - Chest discomfort [Unknown]
